FAERS Safety Report 21614218 (Version 2)
Quarter: 2022Q4

REPORT INFORMATION
  Report Type: Report from Study
  Country: GB (occurrence: GB)
  Receive Date: 20221118
  Receipt Date: 20221214
  Transmission Date: 20230113
  Serious: Yes (Death, Hospitalization)
  Sender: FDA-Public Use
  Company Number: GB-UCBSA-2022065637

PATIENT
  Sex: Male

DRUGS (1)
  1. CIMZIA [Suspect]
     Active Substance: CERTOLIZUMAB PEGOL
     Indication: Rheumatoid arthritis
     Dosage: 200 MILLIGRAM, EV 3 WEEKS
     Route: 058

REACTIONS (3)
  - Death [Fatal]
  - Hospitalisation [Unknown]
  - Product use issue [Unknown]
